FAERS Safety Report 12677793 (Version 1)
Quarter: 2016Q3

REPORT INFORMATION
  Report Type: Spontaneous
  Country: US (occurrence: US)
  Receive Date: 20160823
  Receipt Date: 20160823
  Transmission Date: 20161109
  Serious: Yes (Other)
  Sender: FDA-Public Use
  Company Number: US-TEVA-685826USA

PATIENT
  Sex: Female

DRUGS (1)
  1. COPAXONE [Suspect]
     Active Substance: GLATIRAMER ACETATE

REACTIONS (6)
  - Multiple sclerosis relapse [Unknown]
  - Lhermitte^s sign [Unknown]
  - Drug ineffective [Unknown]
  - Intervertebral disc disorder [Unknown]
  - Paraesthesia [Unknown]
  - Hypoaesthesia [Unknown]
